FAERS Safety Report 14626182 (Version 1)
Quarter: 2018Q1

REPORT INFORMATION
  Report Type: Spontaneous
  Country: DE (occurrence: DE)
  Receive Date: 20180312
  Receipt Date: 20180312
  Transmission Date: 20180509
  Serious: Yes (Life-Threatening, Hospitalization)
  Sender: FDA-Public Use
  Company Number: DE-TEVA-2018-DE-867809

PATIENT
  Age: 68 Year
  Sex: Male
  Weight: 105 kg

DRUGS (4)
  1. BISOPROLOL 2.5MG [Suspect]
     Active Substance: BISOPROLOL
     Dosage: 1 DOSAGE FORMS DAILY;
     Route: 048
  2. TRIMIPRAMINE [Suspect]
     Active Substance: TRIMIPRAMINE
     Indication: PANIC ATTACK
     Route: 065
  3. VOTUM [Concomitant]
     Active Substance: OLMESARTAN MEDOXOMIL
     Dosage: 1 DOSAGE FORMS DAILY;
     Route: 065
  4. BISOPROLOL 1.25 MG [Concomitant]
     Active Substance: BISOPROLOL
     Route: 065

REACTIONS (4)
  - Product quality issue [Unknown]
  - Restlessness [Not Recovered/Not Resolved]
  - Nervousness [Not Recovered/Not Resolved]
  - Panic attack [Recovered/Resolved]
